FAERS Safety Report 4287111-9 (Version None)
Quarter: 2004Q1

REPORT INFORMATION
  Report Type: 
  Country: None (occurrence: None)
  Receive Date: 20040204
  Receipt Date: 20040120
  Transmission Date: 20041129
  Serious: Yes (Hospitalization)
  Sender: FDA-Public Use
  Company Number: 204199

PATIENT
  Age: 58 Year
  Sex: Female

DRUGS (7)
  1. HERCEPTIN [Suspect]
     Indication: BREAST CANCER
     Dosage: SEE IMAGE
     Route: 042
     Dates: start: 20031209, end: 20031209
  2. TAXOTERE [Suspect]
     Indication: BREAST CANCER
     Dosage: 183 MG, Q3W, INTRAVENOUS
     Route: 042
     Dates: start: 20031210
  3. DEXAMETHASONE [Concomitant]
  4. ZOFRAN [Concomitant]
  5. MOTILIUM [Concomitant]
  6. ELTROXIN (LEVOTHYROXINE SODIUM) [Concomitant]
  7. SLOW-K [Concomitant]

REACTIONS (5)
  - NASOPHARYNGITIS [None]
  - NEUTROPENIC INFECTION [None]
  - NEUTROPENIC SEPSIS [None]
  - PYREXIA [None]
  - VIRAL INFECTION [None]
